FAERS Safety Report 4687643-5 (Version None)
Quarter: 2005Q2

REPORT INFORMATION
  Report Type: 
  Country: None (occurrence: None)
  Receive Date: 20050608
  Receipt Date: 20050608
  Transmission Date: 20051028
  Serious: No
  Sender: FDA-Public Use
  Company Number: None

PATIENT
  Age: 68 Year
  Sex: Female
  Weight: 54.6 kg

DRUGS (5)
  1. FOSAMAX [Suspect]
     Indication: OSTEOPOROSIS
     Dosage: 70 MG   WEEKLY   ORAL
     Route: 048
     Dates: start: 19970922, end: 20050607
  2. CLINDAMYCIN [Concomitant]
  3. ARAVA [Concomitant]
  4. ETODOLAC [Concomitant]
  5. MAXZIDE [Concomitant]

REACTIONS (2)
  - ABSCESS JAW [None]
  - NECROSIS [None]
